FAERS Safety Report 8482103-8 (Version None)
Quarter: 2012Q3

REPORT INFORMATION
  Report Type: 
  Country: None (occurrence: None)
  Receive Date: 20120702
  Receipt Date: 20120625
  Transmission Date: 20120928
  Serious: Yes (Other)
  Sender: FDA-Public Use
  Company Number: US-PFIZER INC-2012074830

PATIENT
  Sex: Male
  Weight: 111 kg

DRUGS (12)
  1. NEXIUM [Concomitant]
     Indication: GASTROOESOPHAGEAL REFLUX DISEASE
     Dosage: 40 MG, DAILY
  2. VITAMIN D [Concomitant]
  3. LIPITOR [Interacting]
     Indication: BLOOD CHOLESTEROL ABNORMAL
     Dosage: 5 MG, 1X/DAY
     Route: 048
     Dates: start: 20020101
  4. ASCORBIC ACID [Concomitant]
     Dosage: 500 MG, DAILY
  5. CALCIUM [Concomitant]
  6. ACETYLSALICYLIC ACID [Concomitant]
     Dosage: 81 MG DAILY
  7. MULTI-VITAMINS [Concomitant]
     Indication: ROUTINE HEALTH MAINTENANCE
     Dosage: UNK
  8. VIAGRA [Suspect]
     Indication: ERECTILE DYSFUNCTION
     Dosage: 100 MG, AS NEEDED
     Route: 048
     Dates: end: 20120313
  9. CO-Q-10 [Interacting]
     Indication: CARDIAC ENZYMES
     Dosage: 100 MG, UNK
     Dates: start: 20120301
  10. FISH OIL [Concomitant]
     Indication: ROUTINE HEALTH MAINTENANCE
     Dosage: 1200 MG, DAILY
  11. VIAGRA [Interacting]
     Indication: PENILE VASCULAR DISORDER
  12. CO-Q-10 [Interacting]
     Dosage: 200 MG, DAILY
     Dates: start: 20120301, end: 20120314

REACTIONS (9)
  - BLOOD PRESSURE DECREASED [None]
  - DRUG INTERACTION [None]
  - DRUG INEFFECTIVE [None]
  - DEAFNESS [None]
  - CHILLS [None]
  - CYANOPSIA [None]
  - NASAL CONGESTION [None]
  - HEADACHE [None]
  - TREMOR [None]
